FAERS Safety Report 8976187 (Version 2)
Quarter: 2013Q1

REPORT INFORMATION
  Report Type: Spontaneous
  Country: US (occurrence: US)
  Receive Date: 20121220
  Receipt Date: 20130321
  Transmission Date: 20140127
  Serious: Yes (Death, Hospitalization)
  Sender: FDA-Public Use
  Company Number: US-ELI_LILLY_AND_COMPANY-US201212004898

PATIENT
  Sex: Female
  Weight: 53 kg

DRUGS (6)
  1. ALIMTA [Suspect]
     Indication: NON-SMALL CELL LUNG CANCER METASTATIC
     Dosage: 500 MG/M2, EVERY 3 WEEKS
     Route: 042
     Dates: start: 20120103
  2. CARBOPLATIN [Concomitant]
     Indication: NON-SMALL CELL LUNG CANCER
     Dosage: UNK
     Dates: start: 20120103
  3. BEVACIZUMAB [Concomitant]
     Indication: NON-SMALL CELL LUNG CANCER
     Dosage: UNK
     Dates: start: 20120508
  4. VITAMIN B12 [Concomitant]
     Dosage: 1 MG, UNK
     Dates: start: 20111230
  5. FOLIC ACID [Concomitant]
     Dosage: 1 MG, UNK
     Dates: start: 20111230
  6. CORTICOSTEROIDS [Concomitant]
     Dosage: 8 MG, BID
     Route: 048

REACTIONS (3)
  - Malignant neoplasm progression [Fatal]
  - Flank pain [Unknown]
  - Off label use [Unknown]
